FAERS Safety Report 4409892-3 (Version None)
Quarter: 2004Q3

REPORT INFORMATION
  Report Type: 
  Country: None (occurrence: None)
  Receive Date: 20040726
  Receipt Date: 20040709
  Transmission Date: 20050211
  Serious: Yes (Other)
  Sender: FDA-Public Use
  Company Number: CH-2004-025427

PATIENT
  Age: 33 Year
  Sex: Female
  Weight: 63 kg

DRUGS (3)
  1. MIRENA [Suspect]
     Indication: CONTRACEPTION
     Dosage: 20 UG/DAY, INTRA-UTERINE
     Dates: start: 19991101, end: 20040421
  2. MIRENA [Suspect]
     Indication: MENORRHAGIA
     Dosage: 20 UG/DAY, INTRA-UTERINE
     Dates: start: 19991101, end: 20040421
  3. ASPIRIN [Concomitant]

REACTIONS (6)
  - CONDITION AGGRAVATED [None]
  - DYSMENORRHOEA [None]
  - HEART RATE INCREASED [None]
  - MENORRHAGIA [None]
  - METRORRHAGIA [None]
  - MIGRAINE [None]
